FAERS Safety Report 7910251-7 (Version None)
Quarter: 2011Q4

REPORT INFORMATION
  Report Type: 
  Country: None (occurrence: None)
  Receive Date: 20111111
  Receipt Date: 20111026
  Transmission Date: 20120403
  Serious: Yes (Hospitalization)
  Sender: FDA-Public Use
  Company Number: CH-ROCHE-1010738

PATIENT
  Age: 65 Year
  Sex: Male

DRUGS (5)
  1. PEMETREXED DISODIUM [Suspect]
     Indication: LUNG ADENOCARCINOMA METASTATIC
     Dosage: DOSE: 950-1000 MG, LAST DOSE PRIOR TO SAE ON 03 OCTOBER 2011, FORM: NOT REPORTED
     Route: 042
     Dates: start: 20110523
  2. PHENPROCOUMON [Concomitant]
     Route: 048
     Dates: start: 20111012
  3. AVASTIN [Suspect]
     Indication: LUNG ADENOCARCINOMA METASTATIC
     Dosage: DOSE: 600- 650 MG, LAST DOSE PRIOR TO SAE ON 03 OCTOBER 2011, FORM: NOT REPORTED
     Route: 042
     Dates: start: 20110523
  4. CISPLATIN [Suspect]
     Indication: LUNG ADENOCARCINOMA METASTATIC
     Dosage: LAST DOSE PRIOR TO SAE ON 26 JULY 2011, FORM: NOT REPORTED
     Route: 042
     Dates: start: 20110523
  5. METOPROLOL [Concomitant]
     Route: 048
     Dates: start: 20111010

REACTIONS (1)
  - ATRIAL FLUTTER [None]
